FAERS Safety Report 22628111 (Version 1)
Quarter: 2023Q2

REPORT INFORMATION
  Report Type: Other
  Country: IN (occurrence: IN)
  Receive Date: 20230622
  Receipt Date: 20230622
  Transmission Date: 20230721
  Serious: Yes (Death, Other)
  Sender: FDA-Public Use
  Company Number: IN-Bion-011748

PATIENT
  Age: 42 Year
  Sex: Female

DRUGS (3)
  1. VALPROIC ACID [Suspect]
     Active Substance: VALPROIC ACID
     Indication: Epilepsy
  2. FLUNARIZINE [Concomitant]
     Active Substance: FLUNARIZINE
     Indication: Product use in unapproved indication
  3. AMITRIPTYLINE [Concomitant]
     Active Substance: AMITRIPTYLINE
     Indication: Product use in unapproved indication

REACTIONS (2)
  - Mixed liver injury [Fatal]
  - Acute hepatic failure [Fatal]
